FAERS Safety Report 5612696-7 (Version None)
Quarter: 2008Q1

REPORT INFORMATION
  Report Type: 
  Country: None (occurrence: None)
  Receive Date: 20080204
  Receipt Date: 20080122
  Transmission Date: 20080703
  Serious: No
  Sender: FDA-Public Use
  Company Number: CN-ASTRAZENECA-2008AP00478

PATIENT
  Age: 20 Year
  Sex: Male

DRUGS (5)
  1. SEROQUEL [Suspect]
     Indication: SCHIZOPHRENIA
     Dosage: 400-500MG
     Route: 048
     Dates: start: 20041001, end: 20070101
  2. SEROQUEL [Suspect]
     Route: 048
     Dates: start: 20070101, end: 20070501
  3. SEROQUEL [Suspect]
     Route: 048
     Dates: start: 20070601, end: 20080101
  4. RISPERIDONE [Suspect]
     Indication: SCHIZOPHRENIA
     Route: 048
     Dates: start: 20070501, end: 20070601
  5. CLINDAMYCIN HCL [Concomitant]

REACTIONS (1)
  - LYMPHADENOPATHY [None]
